FAERS Safety Report 13187786 (Version 3)
Quarter: 2017Q1

REPORT INFORMATION
  Report Type: Spontaneous
  Country: DK (occurrence: DK)
  Receive Date: 20170206
  Receipt Date: 20170224
  Transmission Date: 20170428
  Serious: No
  Sender: FDA-Public Use
  Company Number: DK-ROCHE-1889603

PATIENT
  Sex: Female

DRUGS (1)
  1. XOLAIR [Suspect]
     Active Substance: OMALIZUMAB
     Indication: ANGIOEDEMA
     Route: 065

REACTIONS (4)
  - Influenza [Unknown]
  - Fatigue [Unknown]
  - Pain [Unknown]
  - Product use issue [Unknown]
